FAERS Safety Report 18419006 (Version 1)
Quarter: 2020Q4

REPORT INFORMATION
  Report Type: Spontaneous
  Country: US (occurrence: US)
  Receive Date: 20201022
  Receipt Date: 20201022
  Transmission Date: 20210114
  Serious: Yes (Hospitalization)
  Sender: FDA-Public Use
  Company Number: None

PATIENT
  Age: 61 Year
  Sex: Female

DRUGS (3)
  1. HUMIRA [Suspect]
     Active Substance: ADALIMUMAB
     Indication: CROHN^S DISEASE
     Route: 058
  2. AZATH IOPIRN E [Concomitant]
  3. HORMONE CRE BASE [Concomitant]

REACTIONS (3)
  - Condition aggravated [None]
  - Diarrhoea [None]
  - Colon operation [None]

NARRATIVE: CASE EVENT DATE: 20200405
